FAERS Safety Report 7896752 (Version 6)
Quarter: 2013Q1

REPORT INFORMATION
  Report Type: Spontaneous
  Country: US (occurrence: US)
  Receive Date: 20110413
  Receipt Date: 20130128
  Transmission Date: 20140127
  Serious: Yes (Other)
  Sender: FDA-Public Use
  Company Number: US-JNJFOC-20110403876

PATIENT
  Age: 54 None
  Sex: Male
  Weight: 140.16 kg

DRUGS (35)
  1. LEVAQUIN [Suspect]
     Indication: SINUSITIS
     Route: 048
     Dates: start: 20070308
  2. LEVAQUIN [Suspect]
     Indication: SINUSITIS
     Route: 048
     Dates: start: 2008
  3. LEVAQUIN [Suspect]
     Indication: SINUSITIS
     Route: 048
     Dates: start: 20100720
  4. LEVAQUIN [Suspect]
     Indication: SINUSITIS
     Route: 048
     Dates: start: 20080919
  5. LEVAQUIN [Suspect]
     Indication: SINUSITIS
     Route: 048
     Dates: start: 20070322
  6. LEVAQUIN [Suspect]
     Indication: SINUSITIS
     Route: 048
     Dates: start: 20070315
  7. LEVAQUIN [Suspect]
     Indication: SINUSITIS
     Route: 048
     Dates: start: 2008
  8. LEVAQUIN [Suspect]
     Indication: SINUSITIS
     Route: 048
     Dates: start: 20070308
  9. LEVAQUIN [Suspect]
     Indication: SINUSITIS
     Route: 048
     Dates: start: 20100720
  10. LEVAQUIN [Suspect]
     Indication: SINUSITIS
     Route: 048
     Dates: start: 20080919
  11. LEVAQUIN [Suspect]
     Indication: SINUSITIS
     Route: 048
     Dates: start: 20070322
  12. LEVAQUIN [Suspect]
     Indication: SINUSITIS
     Route: 048
     Dates: start: 20070315
  13. HYDROCORTISONE [Suspect]
     Indication: PRODUCT USED FOR UNKNOWN INDICATION
     Route: 065
  14. FLONASE [Suspect]
     Indication: PRODUCT USED FOR UNKNOWN INDICATION
     Route: 045
  15. VERAMYST [Suspect]
     Indication: PRODUCT USED FOR UNKNOWN INDICATION
     Route: 045
  16. VIAGRA [Concomitant]
     Dosage: AS NEEDED 1 HOUR PRIOR TO INTERCOURSE
     Route: 065
  17. DECONAMINE SR [Concomitant]
     Dosage: PRN
     Route: 048
  18. ALBUTEROL [Concomitant]
     Route: 065
  19. DYAZIDE [Concomitant]
     Route: 048
  20. FLUOCINONIDE [Concomitant]
     Route: 065
  21. TRAMADOL [Concomitant]
     Route: 065
  22. ZITHROMAX [Concomitant]
     Route: 065
  23. ATARAX [Concomitant]
     Indication: PROPHYLAXIS
     Route: 065
  24. TRIAMTERENE AND HYDROCHLOROTHIAZID [Concomitant]
     Dosage: 37.5/25 MG
     Route: 065
  25. DEXAMETHASONE [Concomitant]
     Dosage: 37.5/25 MG
     Route: 065
  26. NEOMYCIN SULFATE W/POLYMYCIN B/HYDROCORTISO. [Concomitant]
     Dosage: 37.5/25 MG
     Route: 047
  27. PROMETHAZINE W/CODEINE [Concomitant]
     Dosage: 2 TEASPOONSFUL AT  BED TIME
     Route: 048
  28. PROPOXYPHENE, NAPSYLATE AND ACETAMINOPHEN [Concomitant]
     Indication: PAIN
     Dosage: 100/650
     Route: 048
  29. AMOXICILLIAN WITH CLAVULANATE POTASSIUM [Concomitant]
     Dosage: 875/125 MG
     Route: 048
  30. RIFAMPIN [Concomitant]
     Dosage: 875/125 MG
     Route: 065
  31. SULFAMETHOXAZOLE/TRIMETHOPRIM [Concomitant]
     Dosage: 800/160 MG FOR 7 DAYS
     Route: 065
  32. PSEUDOEPHEDRINE/CHLORPHENIRAMINE [Concomitant]
     Indication: NASAL CONGESTION
     Dosage: 800/160 MG FOR 7 DAYS
     Route: 048
  33. ZYVOX [Concomitant]
     Route: 065
  34. AMOXICILLIN/CLAVULANATE [Concomitant]
     Dosage: 500/125 MG
     Route: 065
  35. NAPROXEN [Concomitant]
     Route: 048

REACTIONS (16)
  - Tendonitis [Unknown]
  - Ligament sprain [Recovering/Resolving]
  - Tendon calcification [Unknown]
  - Sensory loss [Unknown]
  - Fall [Unknown]
  - Staphylococcal infection [Unknown]
  - Palmar fasciitis [Unknown]
  - Plantar fasciitis [Recovering/Resolving]
  - Tendonitis [Unknown]
  - Peripheral coldness [Unknown]
  - Myalgia [Unknown]
  - Hypoaesthesia [Unknown]
  - Arthralgia [Unknown]
  - Paraesthesia [Unknown]
  - Back pain [Unknown]
  - Joint swelling [Unknown]
